FAERS Safety Report 5359123-5 (Version None)
Quarter: 2007Q2

REPORT INFORMATION
  Report Type: 
  Country: None (occurrence: None)
  Receive Date: 20070615
  Receipt Date: 20070612
  Transmission Date: 20071010
  Serious: Yes (Hospitalization)
  Sender: FDA-Public Use
  Company Number: SEWYE844313JUN07

PATIENT
  Sex: Female

DRUGS (6)
  1. TAZOCIN [Suspect]
     Indication: INFECTION
     Route: 042
     Dates: start: 20070419, end: 20070420
  2. BETOLVEX [Concomitant]
     Dosage: 1 MG
  3. VISCOTEARS [Concomitant]
     Dosage: 2 MG
  4. ESTRIOL [Concomitant]
  5. MADOPARK - SLOW RELEASE [Concomitant]
     Dosage: 100 MG/25 MG
  6. SEROQUEL [Concomitant]
     Dosage: 25 MG

REACTIONS (5)
  - BLOOD ALKALINE PHOSPHATASE INCREASED [None]
  - BLOOD BILIRUBIN INCREASED [None]
  - GAMMA-GLUTAMYLTRANSFERASE INCREASED [None]
  - TRANSAMINASES INCREASED [None]
  - YELLOW SKIN [None]
